FAERS Safety Report 24435390 (Version 1)
Quarter: 2024Q4

REPORT INFORMATION
  Report Type: Spontaneous
  Country: US (occurrence: US)
  Receive Date: 20241015
  Receipt Date: 20241015
  Transmission Date: 20250115
  Serious: Yes (Hospitalization, Other)
  Sender: IPCA
  Company Number: US-IPCA LABORATORIES LIMITED-IPC-2024-US-002438

PATIENT

DRUGS (1)
  1. METFORMIN [Suspect]
     Active Substance: METFORMIN HYDROCHLORIDE
     Indication: Diabetes mellitus
     Dosage: UNK
     Route: 065

REACTIONS (9)
  - Vasoplegia syndrome [Unknown]
  - Lactic acidosis [Unknown]
  - Respiratory failure [Unknown]
  - Acute kidney injury [Unknown]
  - Hypothermia [Unknown]
  - Back pain [Unknown]
  - Vomiting [Unknown]
  - Tachypnoea [Unknown]
  - Toxicity to various agents [Unknown]
